FAERS Safety Report 9222526 (Version 1)
Quarter: 2013Q2

REPORT INFORMATION
  Report Type: Spontaneous
  Country: US (occurrence: US)
  Receive Date: 20130410
  Receipt Date: 20130410
  Transmission Date: 20140414
  Serious: Yes (Hospitalization)
  Sender: FDA-Public Use
  Company Number: US-SANOFI-AVENTIS-2013SA036022

PATIENT
  Age: 70 Year
  Sex: Male
  Weight: 93.44 kg

DRUGS (3)
  1. ELIGARD [Suspect]
     Indication: PROSTATE CANCER
     Route: 065
     Dates: start: 201212, end: 201212
  2. ELIGARD [Suspect]
     Indication: PROSTATE CANCER
     Route: 065
     Dates: start: 20130311, end: 20130311
  3. AMIODARONE [Concomitant]
     Indication: HEART RATE IRREGULAR

REACTIONS (2)
  - Cardiac disorder [Not Recovered/Not Resolved]
  - Pollakiuria [Not Recovered/Not Resolved]
